FAERS Safety Report 6355999-3 (Version None)
Quarter: 2009Q3

REPORT INFORMATION
  Report Type: 
  Country: None (occurrence: None)
  Receive Date: 20090914
  Receipt Date: 20090914
  Transmission Date: 20100115
  Serious: Yes (Life-Threatening, Hospitalization)
  Sender: FDA-Public Use
  Company Number: None

PATIENT
  Age: 77 Year
  Sex: Female
  Weight: 74.8435 kg

DRUGS (2)
  1. AFINITOR [Suspect]
     Indication: RENAL CANCER
     Dosage: 5 MG DAILY PO
     Route: 048
     Dates: start: 20090704, end: 20090819
  2. FENTANYL-50 [Suspect]
     Indication: PAIN
     Dosage: 50 MCG EVERY 3DAYS TRANSDERMAL
     Route: 062
     Dates: start: 20090102, end: 20090911

REACTIONS (9)
  - BACTERIAL INFECTION [None]
  - BLOOD GLUCOSE INCREASED [None]
  - DECREASED APPETITE [None]
  - DIARRHOEA [None]
  - JOINT SWELLING [None]
  - MOUTH ULCERATION [None]
  - OEDEMA PERIPHERAL [None]
  - PNEUMONIA [None]
  - URINARY TRACT INFECTION BACTERIAL [None]
